FAERS Safety Report 14965729 (Version 3)
Quarter: 2018Q2

REPORT INFORMATION
  Report Type: Spontaneous
  Country: US (occurrence: US)
  Receive Date: 20180602
  Receipt Date: 20180625
  Transmission Date: 20180711
  Serious: No
  Sender: FDA-Public Use
  Company Number: US-TEVA-2018-US-900320

PATIENT
  Sex: Female

DRUGS (1)
  1. LAMOTRIGINE. [Suspect]
     Active Substance: LAMOTRIGINE
     Indication: SEIZURE
     Dosage: 200 MILLIGRAM DAILY; ONE AT 6 AM AND ONE AT 6 PM.
     Route: 065
     Dates: start: 2004

REACTIONS (3)
  - Tremor [Unknown]
  - Product substitution issue [Unknown]
  - Blepharospasm [Recovered/Resolved]
